FAERS Safety Report 10704210 (Version 2)
Quarter: 2015Q1

REPORT INFORMATION
  Report Type: Spontaneous
  Country: US (occurrence: US)
  Receive Date: 20150112
  Receipt Date: 20150112
  Transmission Date: 20150721
  Serious: Yes (Other)
  Sender: FDA-Public Use
  Company Number: US-009507513-1011USA00329

PATIENT
  Sex: Male
  Weight: 88.89 kg

DRUGS (3)
  1. FINASTERIDE. [Suspect]
     Active Substance: FINASTERIDE
     Indication: ALOPECIA
     Dosage: 1 MG, UNK
     Route: 048
     Dates: start: 20101007
  2. PROSCAR [Suspect]
     Active Substance: FINASTERIDE
     Dosage: UNK MG, UNK
     Route: 048
     Dates: start: 20101007
  3. PROPECIA [Suspect]
     Active Substance: FINASTERIDE
     Indication: HAIR DISORDER
     Dosage: UNK MG, UNK
     Route: 048
     Dates: start: 201009, end: 20101027

REACTIONS (26)
  - Reproductive tract disorder [Unknown]
  - Arthralgia [Unknown]
  - Varicocele [Unknown]
  - Vision blurred [Unknown]
  - Libido decreased [Unknown]
  - Ejaculation failure [Unknown]
  - Wrong technique in drug usage process [Unknown]
  - Paraesthesia [Unknown]
  - Hypoaesthesia [Unknown]
  - Peyronie^s disease [Unknown]
  - Stress [Unknown]
  - Anxiety [Unknown]
  - Back pain [Unknown]
  - Anxiety [Unknown]
  - Cognitive disorder [Unknown]
  - Dizziness [Unknown]
  - Erectile dysfunction [Unknown]
  - Hypersensitivity [Unknown]
  - Sexual dysfunction [Unknown]
  - Breast mass [Not Recovered/Not Resolved]
  - Chest pain [Unknown]
  - Fatigue [Unknown]
  - Orchitis [Unknown]
  - Ejaculation disorder [Unknown]
  - Depression [Unknown]
  - Sluggishness [Unknown]

NARRATIVE: CASE EVENT DATE: 20101007
